FAERS Safety Report 15704164 (Version 2)
Quarter: 2018Q4

REPORT INFORMATION
  Report Type: Spontaneous
  Country: US (occurrence: US)
  Receive Date: 20181210
  Receipt Date: 20181228
  Transmission Date: 20190205
  Serious: Yes (Other)
  Sender: FDA-Public Use
  Company Number: US-PFIZER INC-2018503664

PATIENT
  Age: 84 Year
  Sex: Male
  Weight: 79.38 kg

DRUGS (1)
  1. ESTROGENS CONJUGATED [Suspect]
     Active Substance: ESTROGENS, CONJUGATED
     Indication: EPISTAXIS
     Dosage: 0.625 MG, 3X/DAY [CREAM APPLIED TO Q-TIP AND SPREAD IN THE NOSE THREE TIMES A DAY]
     Route: 045

REACTIONS (3)
  - Metastases to lung [Recovered/Resolved]
  - Skin cancer metastatic [Recovered/Resolved]
  - Product use in unapproved indication [Unknown]

NARRATIVE: CASE EVENT DATE: 2017
